FAERS Safety Report 15962759 (Version 5)
Quarter: 2019Q3

REPORT INFORMATION
  Report Type: Spontaneous
  Country: US (occurrence: US)
  Receive Date: 20190214
  Receipt Date: 20190821
  Transmission Date: 20191004
  Serious: Yes (Other)
  Sender: FDA-Public Use
  Company Number: US-ASTRAZENECA-2018SF14525

PATIENT
  Age: 17935 Day
  Sex: Male
  Weight: 142.4 kg

DRUGS (34)
  1. NEXIUM 24HR [Suspect]
     Active Substance: ESOMEPRAZOLE MAGNESIUM
     Route: 048
  2. MICARDIS HCT [Concomitant]
     Active Substance: HYDROCHLOROTHIAZIDE\TELMISARTAN
  3. FLEXERIL [Concomitant]
     Active Substance: CYCLOBENZAPRINE HYDROCHLORIDE
  4. CLARITIN-D NOS [Concomitant]
     Active Substance: LORATADINE\PSEUDOEPHEDRINE SULFATE
  5. LISINOPRIL. [Concomitant]
     Active Substance: LISINOPRIL
  6. ZYLOPRIM [Concomitant]
     Active Substance: ALLOPURINOL
  7. GLUCOPHAGE [Concomitant]
     Active Substance: METFORMIN HYDROCHLORIDE
  8. ZANTAC [Concomitant]
     Active Substance: RANITIDINE HYDROCHLORIDE
  9. NEXIUM [Suspect]
     Active Substance: ESOMEPRAZOLE MAGNESIUM
     Route: 048
  10. PRILOSEC OTC [Suspect]
     Active Substance: OMEPRAZOLE MAGNESIUM
     Route: 048
  11. PREVACID 24 HR [Suspect]
     Active Substance: LANSOPRAZOLE
     Route: 065
  12. PROTONIX [Suspect]
     Active Substance: PANTOPRAZOLE SODIUM
     Indication: GASTROOESOPHAGEAL REFLUX DISEASE
     Route: 065
     Dates: start: 20150520
  13. NORVASC [Concomitant]
     Active Substance: AMLODIPINE BESYLATE
  14. NIFEDIPINE. [Concomitant]
     Active Substance: NIFEDIPINE
  15. PHENERGAN [Concomitant]
     Active Substance: PROMETHAZINE HYDROCHLORIDE
  16. NEXIUM [Suspect]
     Active Substance: ESOMEPRAZOLE MAGNESIUM
     Route: 048
     Dates: start: 20151119, end: 20160215
  17. PRILOSEC [Suspect]
     Active Substance: OMEPRAZOLE MAGNESIUM
     Route: 048
  18. FLONASE [Concomitant]
     Active Substance: FLUTICASONE PROPIONATE
  19. LIPITOR [Concomitant]
     Active Substance: ATORVASTATIN CALCIUM
  20. GLEEVEC [Concomitant]
     Active Substance: IMATINIB MESYLATE
  21. MICRO-K [Concomitant]
     Active Substance: POTASSIUM CHLORIDE
  22. NEXIUM 24HR [Suspect]
     Active Substance: ESOMEPRAZOLE MAGNESIUM
     Route: 048
     Dates: start: 20050420, end: 20171231
  23. PREVACID [Suspect]
     Active Substance: LANSOPRAZOLE
     Route: 065
     Dates: start: 20050520, end: 20171231
  24. TOPROL XL [Concomitant]
     Active Substance: METOPROLOL SUCCINATE
  25. PROCARDIA-XL [Concomitant]
  26. REGLAN [Concomitant]
     Active Substance: METOCLOPRAMIDE HYDROCHLORIDE
  27. MICARDIS [Concomitant]
     Active Substance: TELMISARTAN
  28. METFORMIN [Concomitant]
     Active Substance: METFORMIN HYDROCHLORIDE
  29. GLUCOTROL [Concomitant]
     Active Substance: GLIPIZIDE
  30. FLOMAX [Concomitant]
     Active Substance: TAMSULOSIN HYDROCHLORIDE
  31. PREVACID [Suspect]
     Active Substance: LANSOPRAZOLE
     Route: 065
  32. COMPAZINE [Concomitant]
     Active Substance: PROCHLORPERAZINE MALEATE
  33. ZOFRAN [Concomitant]
     Active Substance: ONDANSETRON HYDROCHLORIDE
  34. CRESTOR [Concomitant]
     Active Substance: ROSUVASTATIN CALCIUM

REACTIONS (4)
  - Acute kidney injury [Unknown]
  - Chronic kidney disease [Not Recovered/Not Resolved]
  - Renal injury [Unknown]
  - Renal impairment [Unknown]

NARRATIVE: CASE EVENT DATE: 20130220
